FAERS Safety Report 23829816 (Version 1)
Quarter: 2024Q2

REPORT INFORMATION
  Report Type: Spontaneous
  Country: US (occurrence: US)
  Receive Date: 20240508
  Receipt Date: 20240508
  Transmission Date: 20240716
  Serious: No
  Sender: FDA-Public Use
  Company Number: US-LEO Pharma-370072

PATIENT
  Age: 65 Year
  Sex: Female

DRUGS (2)
  1. ADBRY [Suspect]
     Active Substance: TRALOKINUMAB-LDRM
     Indication: Dermatitis atopic
     Dosage: DOCTOR MOVED HER TO EVERY THREE WEEKS, UNDER THE SKIN
  2. ADBRY [Suspect]
     Active Substance: TRALOKINUMAB-LDRM
     Indication: Dermatitis atopic
     Dosage: TREATMENT REPORTED AS ONGOING  UNDER THE SKIN
     Dates: start: 202211

REACTIONS (2)
  - Inappropriate schedule of product administration [Unknown]
  - Eye pruritus [Unknown]
